FAERS Safety Report 10785857 (Version 1)
Quarter: 2015Q1

REPORT INFORMATION
  Report Type: Spontaneous
  Country: US (occurrence: None)
  Receive Date: 20150210
  Receipt Date: 20150210
  Transmission Date: 20150721
  Serious: Yes (Other)
  Sender: FDA-Public Use
  Company Number: None

PATIENT
  Age: 53 Year
  Sex: Female
  Weight: 72.58 kg

DRUGS (1)
  1. ATENOLOL. [Suspect]
     Active Substance: ATENOLOL
     Indication: CARDIAC DISORDER
     Route: 048
     Dates: start: 20150205, end: 20150206

REACTIONS (9)
  - Palpitations [None]
  - Heart rate increased [None]
  - Lethargy [None]
  - Atrial fibrillation [None]
  - Paraesthesia [None]
  - Asthenia [None]
  - Tremor [None]
  - Chest pain [None]
  - Swollen tongue [None]

NARRATIVE: CASE EVENT DATE: 20150206
